FAERS Safety Report 5219267-5 (Version None)
Quarter: 2007Q1

REPORT INFORMATION
  Report Type: 
  Country: None (occurrence: None)
  Receive Date: 20070123
  Receipt Date: 20061227
  Transmission Date: 20070707
  Serious: Yes (Other)
  Sender: FDA-Public Use
  Company Number: 100#08#2007-00063

PATIENT

DRUGS (17)
  1. SULFAMETHOXAZOLE + TRIMETHOPRIM (CO-TRIMOXAZOLE)(SULFAMETHOXAZOLE + TR [Suspect]
     Indication: DRUG USE FOR UNKNOWN INDICATION
  2. PARACETAMOL (PARACETAMOL) (PARACETAMOL) [Suspect]
     Indication: DRUG USE FOR UNKNOWN INDICATION
  3. AMIKACIN [Concomitant]
  4. FLUCONAZOLE [Concomitant]
  5. ONDANSETRON (ONDANSETRON)(ONDANSETRON) [Suspect]
     Indication: DRUG USE FOR UNKNOWN INDICATION
  6. LISINOPRIL [Suspect]
     Indication: DRUG USE FOR UNKNOWN INDICATION
  7. RANITIDINE (RANITIDINE) (RANITIDINE) [Suspect]
     Indication: DRUG USE FOR UNKNOWN INDICATION
  8. MELPHALAN (MELPHALAN)(MELPHALAN) [Suspect]
     Indication: NON-HODGKIN'S LYMPHOMA
     Dosage: 140 MG/M2 (TOTAL DOSE)
  9. PREDNISOLONE [Suspect]
     Indication: DRUG USE FOR UNKNOWN INDICATION
  10. GRANULOCYTE COLONY STIMULATING FACTOR (GRANULOCYTE COLONY STIMULATING [Suspect]
     Indication: DRUG USE FOR UNKNOWN INDICATION
  11. FUROSEMIDE [Suspect]
     Indication: DRUG USE FOR UNKNOWN INDICATION
  12. GENTAMICIN SULPHATE (GENTAMICIN) (GENTAMICIN) [Concomitant]
  13. TICARCILLIN + CLAVULANIC ACID (TICARCILLIN/CLAVULANTE POTASSIUM) (TICA [Concomitant]
  14. MEROPENEM (MEROPENEM) (MEROPENEM) [Concomitant]
  15. MYCOPHENOLATE MOFETIL (MYCOPHENOLATE MOFETIL) (MYCOPHENOLATE MOFETIL) [Concomitant]
  16. VALACICLOVIR HYDROCHLORIDE (VALACICLOVIR HYDROCHLORIDE) (VALACICLOVIR [Concomitant]
  17. VANCOMYCIN (VANCOMYCIN) (VANCOMYCIN) [Concomitant]

REACTIONS (3)
  - ADENOVIRUS INFECTION [None]
  - COMPLICATIONS OF BONE MARROW TRANSPLANT [None]
  - PANCREATITIS ACUTE [None]
